FAERS Safety Report 10204417 (Version 1)
Quarter: 2014Q2

REPORT INFORMATION
  Report Type: Spontaneous
  Country: US (occurrence: US)
  Receive Date: 20140529
  Receipt Date: 20140529
  Transmission Date: 20141212
  Serious: No
  Sender: FDA-Public Use
  Company Number: US-SANOFI-AVENTIS-2013SA060313

PATIENT
  Age: 69 Year
  Sex: Female

DRUGS (3)
  1. LANTUS SOLOSTAR [Suspect]
     Indication: TYPE 2 DIABETES MELLITUS
     Dosage: 1 YEAR AGO, 10/20 AT AM/PM
     Route: 051
  2. SOLOSTAR [Suspect]
     Indication: TYPE 2 DIABETES MELLITUS
     Dosage: 1 YEAR AGO, AM/PM
  3. METFORMIN [Suspect]

REACTIONS (5)
  - Injection site nodule [Recovered/Resolved]
  - Rash [Recovering/Resolving]
  - Pruritus [Recovering/Resolving]
  - Weight decreased [Unknown]
  - Drug dose omission [Unknown]
